FAERS Safety Report 5973145-2 (Version None)
Quarter: 2008Q4

REPORT INFORMATION
  Report Type: 
  Country: None (occurrence: None)
  Receive Date: 20081201
  Receipt Date: 20081121
  Transmission Date: 20090506
  Serious: Yes (Hospitalization)
  Sender: FDA-Public Use
  Company Number: US-PURDUE-USA_2008_0035969

PATIENT
  Age: 92 Year
  Sex: Female

DRUGS (3)
  1. OXYCONTIN [Suspect]
     Indication: DRUG USE FOR UNKNOWN INDICATION
     Dosage: 10 MG, Q12H
     Dates: start: 20081107
  2. OXYCODONE HCL [Suspect]
     Indication: DRUG USE FOR UNKNOWN INDICATION
     Dosage: 10 MG, Q12H
     Dates: start: 20081107
  3. VICODIN [Concomitant]
     Indication: BREAKTHROUGH PAIN
     Dosage: 5 MG, UNK

REACTIONS (2)
  - DEHYDRATION [None]
  - LETHARGY [None]
